FAERS Safety Report 8509569 (Version 3)
Quarter: 2013Q1

REPORT INFORMATION
  Report Type: Spontaneous
  Country: US (occurrence: US)
  Receive Date: 20120413
  Receipt Date: 20130227
  Transmission Date: 20140127
  Serious: No
  Sender: FDA-Public Use
  Company Number: US-PFIZER INC-2012087281

PATIENT
  Age: 15 Year
  Sex: Female

DRUGS (2)
  1. LO/OVRAL-28 [Suspect]
     Indication: OFF LABEL USE
     Dosage: UNK
     Dates: end: 201202
  2. LO/OVRAL-28 [Suspect]
     Indication: VON WILLEBRAND^S DISEASE

REACTIONS (1)
  - Metrorrhagia [Recovered/Resolved]
